FAERS Safety Report 14746663 (Version 1)
Quarter: 2018Q2

REPORT INFORMATION
  Report Type: Spontaneous
  Country: BR (occurrence: BR)
  Receive Date: 20180411
  Receipt Date: 20180411
  Transmission Date: 20180711
  Serious: Yes (Death, Other)
  Sender: FDA-Public Use
  Company Number: BR-GLAXOSMITHKLINE-BR2018GSK036310

PATIENT
  Sex: Female
  Weight: 50 kg

DRUGS (1)
  1. BENLYSTA [Suspect]
     Active Substance: BELIMUMAB
     Indication: SYSTEMIC LUPUS ERYTHEMATOSUS
     Dosage: 480 MG, UNK
     Dates: start: 20171127

REACTIONS (3)
  - Systemic lupus erythematosus [Fatal]
  - Underdose [Not Recovered/Not Resolved]
  - Drug dose omission [Recovered/Resolved]
